FAERS Safety Report 6636518-0 (Version None)
Quarter: 2010Q1

REPORT INFORMATION
  Report Type: 
  Country: None (occurrence: None)
  Receive Date: 20100226
  Receipt Date: 20090225
  Transmission Date: 20100710
  Serious: Yes (Other)
  Sender: FDA-Public Use
  Company Number: 278308

PATIENT
  Sex: Female

DRUGS (1)
  1. SOMATROPIN (SOMATROPIN) UNKNOWN [Suspect]
     Indication: GROWTH HORMONE DEFICIENCY
     Dates: start: 20060701, end: 20080701

REACTIONS (1)
  - BONE NEOPLASM MALIGNANT [None]
